FAERS Safety Report 6688774-0 (Version None)
Quarter: 2010Q2

REPORT INFORMATION
  Report Type: 
  Country: None (occurrence: None)
  Receive Date: 20100420
  Receipt Date: 20100408
  Transmission Date: 20101027
  Serious: Yes (Hospitalization)
  Sender: FDA-Public Use
  Company Number: US-CEPHALON-2009002889

PATIENT
  Sex: Female
  Weight: 75 kg

DRUGS (9)
  1. NUVIGIL [Suspect]
     Indication: SCHIZOPHRENIA
     Route: 048
     Dates: start: 20081119
  2. RISPERDAL [Concomitant]
     Indication: SCHIZOPHRENIA
     Route: 048
     Dates: start: 20080710
  3. CRESTOR [Concomitant]
     Indication: HYPERCHOLESTEROLAEMIA
     Route: 048
     Dates: start: 20080616
  4. ZETIA [Concomitant]
     Indication: HYPERCHOLESTEROLAEMIA
     Dates: start: 20080616
  5. KLONOPIN [Concomitant]
  6. ALBUTEROL [Concomitant]
     Indication: CHRONIC OBSTRUCTIVE PULMONARY DISEASE
  7. CARAFATE [Concomitant]
     Indication: PEPTIC ULCER
  8. TOPROL-XL [Concomitant]
     Indication: HYPERTENSION
     Dates: start: 20080616
  9. COGENTIN [Concomitant]

REACTIONS (1)
  - SUICIDE ATTEMPT [None]
